FAERS Safety Report 5277593-8 (Version None)
Quarter: 2007Q1

REPORT INFORMATION
  Report Type: 
  Country: None (occurrence: None)
  Receive Date: 20070327
  Receipt Date: 20070315
  Transmission Date: 20070707
  Serious: Yes (Disabling)
  Sender: FDA-Public Use
  Company Number: BG-SHR-BG-2007-008387

PATIENT
  Age: 36 Year
  Sex: Female
  Weight: 84 kg

DRUGS (1)
  1. BETASERON [Suspect]
     Dosage: 250 A?G, EVERY 2D
     Route: 058
     Dates: start: 20060701

REACTIONS (2)
  - ALOPECIA [None]
  - PANNICULITIS [None]
